FAERS Safety Report 7824539-1 (Version None)
Quarter: 2011Q4

REPORT INFORMATION
  Report Type: 
  Country: None (occurrence: None)
  Receive Date: 20111019
  Receipt Date: 20111013
  Transmission Date: 20120403
  Serious: Yes (Other)
  Sender: FDA-Public Use
  Company Number: FR-GENZYME-THYM-1002842

PATIENT
  Sex: Male

DRUGS (1)
  1. THYMOGLOBULIN [Suspect]
     Indication: ACUTE GRAFT VERSUS HOST DISEASE
     Dosage: 225 MG, QD
     Route: 042
     Dates: start: 20110929, end: 20111002

REACTIONS (1)
  - ARTHRITIS [None]
